FAERS Safety Report 23884073 (Version 1)
Quarter: 2024Q2

REPORT INFORMATION
  Report Type: Spontaneous
  Country: DE (occurrence: DE)
  Receive Date: 20240522
  Receipt Date: 20240522
  Transmission Date: 20240716
  Serious: Yes (Other)
  Sender: FDA-Public Use
  Company Number: US-Stemline Therapeutics, Inc.-2023ST005218

PATIENT
  Age: 84 Year
  Sex: Male

DRUGS (1)
  1. ELZONRIS [Suspect]
     Active Substance: TAGRAXOFUSP-ERZS
     Indication: Blastic plasmacytoid dendritic cell neoplasia
     Dosage: 12 MCG/KG FOR FIVE CONSECUTIVE DAYS IN 21-DAY-CYCLES
     Route: 042

REACTIONS (8)
  - Acute myocardial infarction [Unknown]
  - Cardiac failure [Unknown]
  - Acute kidney injury [Unknown]
  - Pneumonia [Unknown]
  - Capillary leak syndrome [Unknown]
  - Aspartate aminotransferase increased [Recovered/Resolved]
  - Alanine aminotransferase increased [Recovered/Resolved]
  - Hypertension [Unknown]
